FAERS Safety Report 7936416 (Version 2)
Quarter: 2014Q2

REPORT INFORMATION
  Report Type: Report from Study
  Country: PR (occurrence: PR)
  Receive Date: 20110509
  Receipt Date: 20140402
  Transmission Date: 20141212
  Serious: Yes (Hospitalization, Other)
  Sender: FDA-Public Use
  Company Number: PR-ALEXION-A201001159

PATIENT
  Age: 29 Year
  Sex: Male

DRUGS (1)
  1. SOLIRIS [Suspect]
     Indication: PAROXYSMAL NOCTURNAL HAEMOGLOBINURIA
     Dosage: UNK
     Route: 042

REACTIONS (5)
  - Thrombocytopenia [Unknown]
  - Packed red blood cell transfusion [None]
  - Platelet transfusion [None]
  - Blood lactate dehydrogenase increased [Unknown]
  - Haemoglobin decreased [None]
